FAERS Safety Report 9310290 (Version 1)
Quarter: 2013Q2

REPORT INFORMATION
  Report Type: Spontaneous
  Country: GB (occurrence: GB)
  Receive Date: 20130527
  Receipt Date: 20130527
  Transmission Date: 20140414
  Serious: Yes (Disabling)
  Sender: FDA-Public Use
  Company Number: GB-PFIZER INC-2013160297

PATIENT
  Age: 22 Year
  Sex: Male
  Weight: 68 kg

DRUGS (2)
  1. IBUPROFEN [Suspect]
     Dosage: UNK
  2. HYOSCINE BUTYLBROMIDE [Concomitant]
     Dosage: UNK
     Dates: start: 20130416, end: 20130423

REACTIONS (1)
  - Oedema peripheral [Recovered/Resolved]
